FAERS Safety Report 7561709-4 (Version None)
Quarter: 2011Q2

REPORT INFORMATION
  Report Type: 
  Country: None (occurrence: None)
  Receive Date: 20110621
  Receipt Date: 20101027
  Transmission Date: 20111010
  Serious: No
  Sender: FDA-Public Use
  Company Number: US-ASTRAZENECA-2010SE51246

PATIENT
  Age: 83 Year
  Sex: Female
  Weight: 114.8 kg

DRUGS (2)
  1. RHINOCORT [Suspect]
     Dosage: 32 MCG/ACT, 2 SPRAYS, TWICE DAILY
     Route: 045
  2. NEXIUM [Suspect]
     Route: 048

REACTIONS (3)
  - BACK PAIN [None]
  - ARTHRALGIA [None]
  - OEDEMA [None]
